FAERS Safety Report 19275961 (Version 2)
Quarter: 2021Q2

REPORT INFORMATION
  Report Type: Report from Study
  Country: US (occurrence: US)
  Receive Date: 20210519
  Receipt Date: 20210522
  Transmission Date: 20210717
  Serious: No
  Sender: FDA-Public Use
  Company Number: NVSC2021US105747

PATIENT
  Sex: Female

DRUGS (1)
  1. KESIMPTA [Suspect]
     Active Substance: OFATUMUMAB
     Indication: PRODUCT USED FOR UNKNOWN INDICATION
     Dosage: UNK
     Route: 065

REACTIONS (11)
  - Nasopharyngitis [Unknown]
  - Injection site reaction [Unknown]
  - Fatigue [Unknown]
  - Pain [Unknown]
  - Headache [Unknown]
  - Chills [Unknown]
  - Musculoskeletal stiffness [Unknown]
  - Dizziness [Unknown]
  - Back pain [Unknown]
  - Dyspnoea [Unknown]
  - Product storage error [Unknown]
